FAERS Safety Report 16291012 (Version 3)
Quarter: 2019Q3

REPORT INFORMATION
  Report Type: Spontaneous
  Country: US (occurrence: US)
  Receive Date: 20190509
  Receipt Date: 20190926
  Transmission Date: 20191004
  Serious: No
  Sender: FDA-Public Use
  Company Number: US-PFIZER INC-2019195979

PATIENT
  Sex: Female
  Weight: 90.26 kg

DRUGS (1)
  1. GABAPENTIN. [Suspect]
     Active Substance: GABAPENTIN
     Dosage: 300 MG CAPSULE THREE TIMES A DAY
     Route: 048

REACTIONS (1)
  - Drug ineffective [Unknown]
